FAERS Safety Report 4450704-X (Version None)
Quarter: 2004Q3

REPORT INFORMATION
  Report Type: 
  Country: None (occurrence: None)
  Receive Date: 20040914
  Receipt Date: 20040914
  Transmission Date: 20050211
  Serious: Yes (Other)
  Sender: FDA-Public Use
  Company Number: None

PATIENT
  Age: 53 Year
  Sex: Female
  Weight: 95.2554 kg

DRUGS (1)
  1. SERZONE [Suspect]
     Indication: DEPRESSION
     Dosage: 1 TABLET DAILY ORAL
     Route: 048
     Dates: start: 20020301, end: 20040704

REACTIONS (6)
  - FATIGUE [None]
  - FEELING COLD [None]
  - HEADACHE [None]
  - MICTURITION URGENCY [None]
  - SOMNOLENCE [None]
  - WEIGHT DECREASED [None]
